FAERS Safety Report 7283614-3 (Version None)
Quarter: 2011Q1

REPORT INFORMATION
  Report Type: 
  Country: None (occurrence: None)
  Receive Date: 20110209
  Receipt Date: 20110202
  Transmission Date: 20110831
  Serious: Yes (Hospitalization)
  Sender: FDA-Public Use
  Company Number: B0697489A

PATIENT
  Sex: Male

DRUGS (6)
  1. AUGMENTIN [Suspect]
     Indication: PRODUCT USED FOR UNKNOWN INDICATION
     Route: 048
     Dates: start: 20101201, end: 20101201
  2. MOPRAL [Concomitant]
     Route: 065
  3. PREVISCAN [Suspect]
     Indication: PRODUCT USED FOR UNKNOWN INDICATION
     Route: 048
     Dates: start: 20090901, end: 20110106
  4. CORDARONE [Concomitant]
     Route: 065
  5. CARDENSIEL [Concomitant]
     Route: 065
  6. LASIX [Concomitant]
     Route: 065

REACTIONS (4)
  - OVERDOSE [None]
  - DRUG INTERACTION [None]
  - GENERAL PHYSICAL HEALTH DETERIORATION [None]
  - INTRA-ABDOMINAL HAEMORRHAGE [None]
